FAERS Safety Report 13511643 (Version 1)
Quarter: 2017Q2

REPORT INFORMATION
  Report Type: Spontaneous
  Country: US (occurrence: US)
  Receive Date: 20170503
  Receipt Date: 20170503
  Transmission Date: 20170830
  Serious: No
  Sender: FDA-Public Use
  Company Number: None

PATIENT
  Age: 85 Year
  Sex: Female

DRUGS (1)
  1. IBRANCE [Suspect]
     Active Substance: PALBOCICLIB
     Indication: PRODUCT USED FOR UNKNOWN INDICATION
     Dosage: 100MG DAILY X21D, 7D OFF PO
     Route: 048
     Dates: start: 20170126, end: 20170502

REACTIONS (1)
  - Epistaxis [None]

NARRATIVE: CASE EVENT DATE: 20170502
